FAERS Safety Report 24964678 (Version 1)
Quarter: 2025Q1

REPORT INFORMATION
  Report Type: Spontaneous
  Country: US (occurrence: US)
  Receive Date: 20250213
  Receipt Date: 20250213
  Transmission Date: 20250408
  Serious: Yes (Hospitalization, Other)
  Sender: TEVA
  Company Number: US-TEVA-VS-3295156

PATIENT
  Age: 68 Year
  Sex: Female

DRUGS (2)
  1. PROPRANOLOL HYDROCHLORIDE [Suspect]
     Active Substance: PROPRANOLOL HYDROCHLORIDE
     Route: 048
  2. LEVOTHYROXINE [Concomitant]
     Active Substance: LEVOTHYROXINE
     Route: 065

REACTIONS (4)
  - Multiple fractures [Recovered/Resolved]
  - Thyroid disorder [Unknown]
  - Psychiatric care [Unknown]
  - Adverse event [Unknown]
